FAERS Safety Report 15434319 (Version 3)
Quarter: 2018Q4

REPORT INFORMATION
  Report Type: Spontaneous
  Country: JP (occurrence: JP)
  Receive Date: 20180927
  Receipt Date: 20181231
  Transmission Date: 20190204
  Serious: Yes (Death, Hospitalization)
  Sender: FDA-Public Use
  Company Number: JP-BAYER-2018-177221

PATIENT
  Age: 77 Year
  Sex: Male

DRUGS (13)
  1. XARELTO [Suspect]
     Active Substance: RIVAROXABAN
     Indication: PULMONARY EMBOLISM
     Dosage: DAILY DOSE 30 MG
     Route: 048
     Dates: start: 20160524, end: 20160614
  2. ADEMPAS [Suspect]
     Active Substance: RIOCIGUAT
     Indication: PULMONARY HYPERTENSION
     Dosage: DAILY DOSE 1.5 MG
     Route: 048
     Dates: start: 20150408
  3. SPIRONOLACTONE. [Concomitant]
     Active Substance: SPIRONOLACTONE
  4. CLOPIDOGREL [Concomitant]
     Active Substance: CLOPIDOGREL BISULFATE
  5. VERAPAMIL [Concomitant]
     Active Substance: VERAPAMIL HYDROCHLORIDE
  6. EDOXABAN [Concomitant]
     Active Substance: EDOXABAN TOSYLATE
     Dosage: UNK
     Dates: end: 201605
  7. XARELTO [Suspect]
     Active Substance: RIVAROXABAN
     Indication: PULMONARY EMBOLISM
     Dosage: 15 MG, QD
     Route: 048
     Dates: start: 20160615
  8. ADEMPAS [Suspect]
     Active Substance: RIOCIGUAT
     Indication: PULMONARY HYPERTENSION
     Dosage: DAILY DOSE 7.5MG
     Route: 048
     Dates: start: 20150406, end: 20150924
  9. ADEMPAS [Suspect]
     Active Substance: RIOCIGUAT
     Indication: PULMONARY HYPERTENSION
     Dosage: DAILY DOSE 1.5 MG
     Route: 048
     Dates: start: 20161018
  10. FUROSEMIDE. [Concomitant]
     Active Substance: FUROSEMIDE
  11. ADEMPAS [Suspect]
     Active Substance: RIOCIGUAT
     Indication: PULMONARY HYPERTENSION
     Dosage: DAILY DOSE 6 MG
     Route: 048
     Dates: start: 20161018, end: 20180825
  12. VONOPRAZAN [Concomitant]
     Active Substance: VONOPRAZAN
  13. DONEPEZIL. [Concomitant]
     Active Substance: DONEPEZIL

REACTIONS (7)
  - Aspiration [Recovered/Resolved]
  - Pyrexia [Recovered/Resolved]
  - Sepsis [Recovered/Resolved]
  - Streptococcal infection [Recovered/Resolved]
  - Pulmonary cavitation [Recovered/Resolved]
  - Infectious pleural effusion [Recovered/Resolved]
  - Pneumonia aspiration [Fatal]

NARRATIVE: CASE EVENT DATE: 201702
